FAERS Safety Report 18691286 (Version 1)
Quarter: 2021Q1

REPORT INFORMATION
  Report Type: Spontaneous
  Country: US (occurrence: US)
  Receive Date: 20210101
  Receipt Date: 20210101
  Transmission Date: 20210419
  Serious: No
  Sender: FDA-Public Use
  Company Number: US-TEVA-2020-US-1865368

PATIENT
  Age: 42 Year
  Sex: Female

DRUGS (2)
  1. METRONIDAZOLE TEVA [Suspect]
     Active Substance: METRONIDAZOLE
     Dosage: CUT THE 500 MG TABLET IN HALF FOR A TOTAL OF 250 MG THREE TIMES PER DAY
     Route: 065
     Dates: start: 2020
  2. METRONIDAZOLE TEVA [Suspect]
     Active Substance: METRONIDAZOLE
     Indication: PRODUCT USED FOR UNKNOWN INDICATION
     Route: 065
     Dates: start: 202011

REACTIONS (5)
  - Tooth abscess [Recovered/Resolved]
  - Palpitations [Recovered/Resolved]
  - Urticaria [Unknown]
  - Malaise [Unknown]
  - Off label use [Unknown]
